FAERS Safety Report 9345702 (Version 3)
Quarter: 2013Q2

REPORT INFORMATION
  Report Type: Spontaneous
  Country: US (occurrence: US)
  Receive Date: 20130613
  Receipt Date: 20130628
  Transmission Date: 20140414
  Serious: Yes (Other)
  Sender: FDA-Public Use
  Company Number: US-PFIZER INC-2013177556

PATIENT
  Age: 59 Year
  Sex: Female
  Weight: 63.49 kg

DRUGS (14)
  1. NEURONTIN [Suspect]
     Dosage: UNK
     Route: 048
     Dates: end: 201305
  2. BENICAR HCT [Suspect]
     Indication: HYPERTENSION
     Dosage: 20 MG/DAY
     Route: 048
  3. LYRICA [Suspect]
     Dosage: 150 MG, 2X/DAY
     Route: 048
     Dates: start: 20130510, end: 201305
  4. LYRICA [Suspect]
     Dosage: 450 MG/DAY
     Route: 048
     Dates: start: 201305, end: 20130601
  5. COMPAZINE [Suspect]
     Indication: NAUSEA
     Dosage: 10 MG, AS NEEDED
     Dates: start: 2013
  6. CRESTOR [Concomitant]
     Indication: BLOOD CHOLESTEROL ABNORMAL
     Dosage: 10 MG/DAY
     Route: 048
  7. ORENCIA [Concomitant]
     Indication: PSORIATIC ARTHROPATHY
     Dosage: 750 MG, MONTHLY
     Route: 042
  8. VOLTAREN [Concomitant]
     Indication: ARTHRITIS
     Dosage: 75 MG, 2X/DAY
     Route: 048
  9. CYMBALTA [Concomitant]
     Indication: FIBROMYALGIA
     Dosage: 60 MG/DAY
     Route: 048
  10. BACLOFEN [Concomitant]
     Indication: MUSCLE SPASMS
     Dosage: 15 MG, 2X/DAY
     Route: 048
  11. BACLOFEN [Concomitant]
     Indication: SPINAL PAIN
  12. PERCOCET [Concomitant]
     Indication: ARTHRITIS
     Dosage: UNK, AS NEEDED
     Route: 048
  13. PERCOCET [Concomitant]
     Indication: SPINAL PAIN
  14. XANAX [Concomitant]
     Indication: ANXIETY
     Dosage: 0.5 MG, AS NEEDED
     Route: 048

REACTIONS (12)
  - Intentional drug misuse [Unknown]
  - Hypertension [Unknown]
  - Drug ineffective [Unknown]
  - Dizziness [Unknown]
  - Malaise [Unknown]
  - Nausea [Not Recovered/Not Resolved]
  - Somnolence [Not Recovered/Not Resolved]
  - Chills [Unknown]
  - Diarrhoea [Unknown]
  - Neck pain [Unknown]
  - Back pain [Unknown]
  - Headache [Unknown]
